FAERS Safety Report 8482323 (Version 4)
Quarter: 2012Q4

REPORT INFORMATION
  Report Type: 
  Country: GB (occurrence: GB)
  Receive Date: 20120329
  Receipt Date: 20120907
  Transmission Date: 20130627
  Serious: Yes (Death, Other)
  Sender: FDA-Public Use
  Company Number: PHFR2012GB001964

PATIENT
  Age: 75 Year
  Sex: Female

DRUGS (10)
  1. CLOZARIL [Suspect]
     Dosage: UNK UKN, UNK
     Route: 048
     Dates: start: 20030628
  2. CLOZARIL [Suspect]
     Dosage: 400 mg, QD
  3. CLOZARIL [Suspect]
     Dosage: 200 mg, daily
     Route: 048
  4. DOSULEPIN [Concomitant]
     Indication: DEPRESSION
     Dosage: 75 mg, QD
     Route: 048
  5. NITROFURANTOIN [Concomitant]
     Indication: URINARY TRACT INFECTION
     Dosage: 400 mg, QD
     Route: 048
  6. ASPIRIN [Concomitant]
     Indication: ANTIPLATELET THERAPY
     Dosage: 75 mg, QD
     Route: 048
  7. PARACETAMOL [Concomitant]
     Indication: ARTHRITIS
     Dosage: 4 g, QD
     Route: 048
  8. LANSOPRAZOLE [Concomitant]
     Indication: GASTRITIS
     Dosage: 30 mg, QD
     Route: 048
  9. CODEINE PHOSPHATE [Concomitant]
     Indication: ARTHRITIS
     Dosage: 60 mg, QD
     Route: 048
  10. SIMVASTATIN [Concomitant]
     Indication: BLOOD CHOLESTEROL
     Dosage: 40 mg, QD
     Route: 048

REACTIONS (6)
  - Pulmonary embolism [Fatal]
  - Overdose [Unknown]
  - General physical health deterioration [Unknown]
  - Malaise [Unknown]
  - Somnolence [Unknown]
  - Antipsychotic drug level increased [Unknown]
